FAERS Safety Report 7766130-1 (Version None)
Quarter: 2011Q3

REPORT INFORMATION
  Report Type: 
  Country: None (occurrence: None)
  Receive Date: 20110921
  Receipt Date: 20110916
  Transmission Date: 20111222
  Serious: Yes (Other)
  Sender: FDA-Public Use
  Company Number: US-PFIZER INC-2011220479

PATIENT
  Sex: Female
  Weight: 62.585 kg

DRUGS (9)
  1. NEXIUM [Concomitant]
     Indication: BARRETT'S OESOPHAGUS
     Dosage: 40 MG, DAILY
     Route: 048
  2. VAGIFEM [Concomitant]
     Indication: HORMONE THERAPY
     Dosage: UNK, 3X/WEEK
     Route: 067
  3. NEURONTIN [Suspect]
     Indication: NEUROPATHY PERIPHERAL
     Dosage: 300MG AT LUNCH TIME AND 600MG AT BED TIME
     Route: 048
  4. SIMVASTATIN [Suspect]
     Indication: BLOOD CHOLESTEROL
     Dosage: 20 MG, DAILY
     Route: 048
  5. BYSTOLIC [Concomitant]
     Indication: HYPERTENSION
     Dosage: 10 MG, DAILY
     Route: 048
  6. AMLODIPINE BESILATE [Concomitant]
     Indication: HYPERTENSION
     Dosage: 5 MG, DAILY
     Route: 048
  7. ACETAMINOPHEN AND HYDROCODONE BITARTRATE [Concomitant]
     Indication: PAIN
     Dosage: 5/500 MG, 3X/DAY
     Route: 048
  8. CALCIUM CARBONATE [Suspect]
     Dosage: 1200 MG, DAILY
     Route: 048
     Dates: start: 20110101, end: 20110901
  9. ASPIRIN [Concomitant]
     Indication: HYPERTENSION
     Dosage: 81 MG, ALTERNATE DAY
     Route: 048

REACTIONS (10)
  - BENIGN SALIVARY GLAND NEOPLASM [None]
  - BLOOD CHOLESTEROL INCREASED [None]
  - LIP SWELLING [None]
  - PROTEIN URINE PRESENT [None]
  - BLOOD CALCIUM INCREASED [None]
  - SWOLLEN TONGUE [None]
  - RENAL CYST [None]
  - LIP PAIN [None]
  - BURNING SENSATION [None]
  - LIP DRY [None]
